FAERS Safety Report 8349922-X (Version None)
Quarter: 2012Q2

REPORT INFORMATION
  Report Type: 
  Country: None (occurrence: None)
  Receive Date: 20120510
  Receipt Date: 20120214
  Transmission Date: 20120825
  Serious: Yes (Hospitalization)
  Sender: FDA-Public Use
  Company Number: US-BRACCO-007488

PATIENT
  Age: 73 Year
  Sex: Female
  Weight: 160 kg

DRUGS (3)
  1. BENADRYL [Concomitant]
     Dates: start: 20120131, end: 20120131
  2. DEPO-MEDROL [Concomitant]
     Route: 042
     Dates: start: 20120131, end: 20120131
  3. MULTIHANCE [Suspect]
     Indication: NUCLEAR MAGNETIC RESONANCE IMAGING
     Dosage: GIVEN AT AROUND 20:14
     Route: 042
     Dates: start: 20120131, end: 20120131

REACTIONS (3)
  - RENAL FAILURE ACUTE [None]
  - DEHYDRATION [None]
  - DIARRHOEA [None]
